FAERS Safety Report 16888957 (Version 2)
Quarter: 2019Q4

REPORT INFORMATION
  Report Type: Spontaneous
  Country: CA (occurrence: CA)
  Receive Date: 20191007
  Receipt Date: 20191013
  Transmission Date: 20200122
  Serious: Yes (Hospitalization, Other)
  Sender: FDA-Public Use
  Company Number: CA-CELLTRION INC.-2018CA019057

PATIENT

DRUGS (28)
  1. INFLECTRA [Suspect]
     Active Substance: INFLIXIMAB-DYYB
     Dosage: 5 MG/KG, WEEKS 0, 2, 6 AND Q 8 WEEKS THEREAFTER
     Route: 042
     Dates: start: 20181004
  2. MEPOLIZUMAB [Concomitant]
     Active Substance: MEPOLIZUMAB
     Dosage: UNK
     Dates: start: 201606
  3. HYDROCORTISONE. [Concomitant]
     Active Substance: HYDROCORTISONE
     Indication: PREMEDICATION
     Dosage: 100 MG, UNK
     Route: 042
  4. HYDROCORTISONE. [Concomitant]
     Active Substance: HYDROCORTISONE
     Dosage: 100 MG, UNK
     Route: 042
     Dates: start: 20190806, end: 20190806
  5. DIPHENHYDRAMINE. [Concomitant]
     Active Substance: DIPHENHYDRAMINE
     Dosage: 25 MG, UNK
     Route: 042
     Dates: start: 20190806
  6. INFLECTRA [Suspect]
     Active Substance: INFLIXIMAB-DYYB
     Indication: CONGENITAL THROMBOCYTOPENIA
     Dosage: 5 MG/KG, (EVERY 0, 2, 6 WEEKS)
     Route: 042
     Dates: start: 20180502
  7. INFLECTRA [Suspect]
     Active Substance: INFLIXIMAB-DYYB
     Indication: COLITIS ULCERATIVE
     Dosage: 500 MG, EVERY 0, 2, 6 WEEKS THEN EVERY 8 WEEKS
     Route: 042
     Dates: start: 20180530
  8. DIPHENHYDRAMINE. [Concomitant]
     Active Substance: DIPHENHYDRAMINE
     Indication: PREMEDICATION
     Dosage: 50 MG, UNK
     Route: 042
  9. INFLECTRA [Suspect]
     Active Substance: INFLIXIMAB-DYYB
     Dosage: 5 MG/KG, WEEKS 0, 2, 6 AND Q 8 WEEKS
     Route: 042
     Dates: start: 20181018
  10. INFLECTRA [Suspect]
     Active Substance: INFLIXIMAB-DYYB
     Dosage: 5 MG/KG, EVERY 0, 2, 6 WEEKS, THEN EVERY 8 WEEKS
     Route: 042
     Dates: start: 20181114
  11. INFLECTRA [Suspect]
     Active Substance: INFLIXIMAB-DYYB
     Dosage: 5 MG/KG, EVERY 4 WEEKS
     Route: 042
     Dates: start: 20190211
  12. INFLECTRA [Suspect]
     Active Substance: INFLIXIMAB-DYYB
     Dosage: 5 MG/KG, EVERY 4 WEEKS
     Route: 042
     Dates: start: 20190907, end: 20190907
  13. INFLECTRA [Suspect]
     Active Substance: INFLIXIMAB-DYYB
     Indication: COLITIS MICROSCOPIC
     Dosage: 5 MG/KG, EVERY 0, 2, 6 WEEKS
     Route: 042
     Dates: start: 20180502
  14. INFLECTRA [Suspect]
     Active Substance: INFLIXIMAB-DYYB
     Dosage: 5 MG/KG, EVERY 4 WEEKS
     Route: 042
     Dates: start: 20190603
  15. INFLECTRA [Suspect]
     Active Substance: INFLIXIMAB-DYYB
     Dosage: 5 MG/KG, EVERY 0, 2, 6 WEEKS, THEN EVERY 8 WEEKS
     Route: 042
     Dates: start: 20190110
  16. INFLECTRA [Suspect]
     Active Substance: INFLIXIMAB-DYYB
     Dosage: 5 MG/KG, EVERY 4 WEEKS
     Route: 042
     Dates: start: 20190506
  17. INFLECTRA [Suspect]
     Active Substance: INFLIXIMAB-DYYB
     Dosage: 5 MG/KG, EVERY 4 WEEKS
     Route: 042
     Dates: start: 20190603
  18. INFLECTRA [Suspect]
     Active Substance: INFLIXIMAB-DYYB
     Dosage: 5 MG/KG, EVERY 4 WEEKS
     Route: 042
     Dates: start: 20190702
  19. INFLECTRA [Suspect]
     Active Substance: INFLIXIMAB-DYYB
     Indication: EOSINOPHIL COUNT ABNORMAL
     Dosage: 5 MG/KG, EVERY 0, 2, 6 WEEKS
     Route: 042
     Dates: start: 20180420, end: 20190110
  20. INFLECTRA [Suspect]
     Active Substance: INFLIXIMAB-DYYB
     Dosage: 5 MG/KG, EVERY 4 WEEKS
     Route: 042
     Dates: start: 20190311
  21. BENADRYL [Concomitant]
     Active Substance: DIPHENHYDRAMINE HYDROCHLORIDE
     Indication: PREMEDICATION
     Dosage: UNK (25-50 MG)
     Route: 042
  22. INFLECTRA [Suspect]
     Active Substance: INFLIXIMAB-DYYB
     Dosage: 5.35 MG/KG, EVERY 0, 2, 6 WEEKS, THEN EVERY 8 WEEKS
     Route: 042
     Dates: start: 20181114
  23. INFLECTRA [Suspect]
     Active Substance: INFLIXIMAB-DYYB
     Dosage: 5.35 MG/KG, EVERY 0, 2, 6 WEEKS, THEN EVERY 8 WEEKS
     Route: 042
     Dates: start: 20181114
  24. INFLECTRA [Suspect]
     Active Substance: INFLIXIMAB-DYYB
     Dosage: 5 MG/KG, EVERY 4 WEEKS
     Route: 042
     Dates: start: 20190408
  25. TYLENOL [Concomitant]
     Active Substance: ACETAMINOPHEN
     Indication: PREMEDICATION
     Dosage: UNK (324-650 MG)
     Route: 048
  26. PREDNISONE. [Concomitant]
     Active Substance: PREDNISONE
     Dosage: 35 MG, DAILY (DOSAGE WEANED 5 MG PER WEEK)
     Route: 065
  27. ACETAMINOPHEN. [Concomitant]
     Active Substance: ACETAMINOPHEN
     Indication: PREMEDICATION
     Dosage: 650 MG, UNK
     Route: 048
     Dates: start: 20190806
  28. INFLECTRA [Suspect]
     Active Substance: INFLIXIMAB-DYYB
     Dosage: 5 MG/KG, EVERY 4 WEEKS
     Route: 042
     Dates: start: 20190806

REACTIONS (20)
  - Infusion site extravasation [Unknown]
  - Infusion site induration [Unknown]
  - Somnolence [Recovered/Resolved]
  - Weight increased [Unknown]
  - Arthralgia [Unknown]
  - Poor venous access [Not Recovered/Not Resolved]
  - Pruritus [Recovered/Resolved]
  - Heart rate irregular [Not Recovered/Not Resolved]
  - Weight decreased [Not Recovered/Not Resolved]
  - Hypersensitivity [Unknown]
  - Drug level decreased [Unknown]
  - Urinary tract infection [Unknown]
  - Off label use [Unknown]
  - Rash [Unknown]
  - Chest pain [Not Recovered/Not Resolved]
  - Product use issue [Unknown]
  - Kidney infection [Unknown]
  - Drug ineffective [Not Recovered/Not Resolved]
  - Blood pressure decreased [Unknown]
  - Condition aggravated [Recovering/Resolving]

NARRATIVE: CASE EVENT DATE: 20180531
